FAERS Safety Report 6762439-9 (Version None)
Quarter: 2010Q2

REPORT INFORMATION
  Report Type: 
  Country: None (occurrence: None)
  Receive Date: 20100609
  Receipt Date: 20100604
  Transmission Date: 20101027
  Serious: Yes (Death)
  Sender: FDA-Public Use
  Company Number: CO-ROCHE-707518

PATIENT
  Sex: Male

DRUGS (3)
  1. XELODA [Suspect]
     Indication: COLORECTAL CANCER
     Dosage: FREQUENCY: DAILY
     Route: 048
     Dates: start: 20090730, end: 20100530
  2. OXYCODONE [Concomitant]
     Indication: PAIN
     Dosage: FREQUENCY: AS REQUIRED
     Route: 048
  3. FUROSEMIDE [Concomitant]
     Dosage: FREQUENCY: DAILY.
     Route: 048

REACTIONS (1)
  - DISEASE PROGRESSION [None]
